FAERS Safety Report 11253897 (Version 4)
Quarter: 2015Q3

REPORT INFORMATION
  Report Type: Report from Study
  Country: CA (occurrence: CA)
  Receive Date: 20150709
  Receipt Date: 20150820
  Transmission Date: 20151125
  Serious: Yes (Death, Hospitalization)
  Sender: FDA-Public Use
  Company Number: CA-BIOGENIDEC-2015BI089216

PATIENT
  Age: 53 Year
  Sex: Female

DRUGS (8)
  1. TECFIDERA [Suspect]
     Active Substance: DIMETHYL FUMARATE
     Indication: RELAPSING-REMITTING MULTIPLE SCLEROSIS
     Route: 048
     Dates: start: 20140805, end: 20140818
  2. TECFIDERA [Suspect]
     Active Substance: DIMETHYL FUMARATE
     Indication: RELAPSING-REMITTING MULTIPLE SCLEROSIS
     Route: 048
     Dates: start: 20140916, end: 20150603
  3. CIPROLEX [Concomitant]
     Active Substance: CIPROFLOXACIN HYDROCHLORIDE
  4. MYRBETRIQ [Concomitant]
     Active Substance: MIRABEGRON
  5. TECFIDERA [Suspect]
     Active Substance: DIMETHYL FUMARATE
     Indication: RELAPSING-REMITTING MULTIPLE SCLEROSIS
     Route: 048
     Dates: start: 20140819, end: 20140901
  6. TECFIDERA [Suspect]
     Active Substance: DIMETHYL FUMARATE
     Indication: RELAPSING-REMITTING MULTIPLE SCLEROSIS
     Route: 048
     Dates: start: 20140902, end: 20140915
  7. TECFIDERA [Suspect]
     Active Substance: DIMETHYL FUMARATE
     Indication: RELAPSING-REMITTING MULTIPLE SCLEROSIS
     Route: 048
     Dates: start: 20140902, end: 20140915
  8. NAPROXEN. [Concomitant]
     Active Substance: NAPROXEN

REACTIONS (7)
  - Underdose [Recovered/Resolved]
  - Syncope [Fatal]
  - Proteinuria [Recovered/Resolved]
  - Cerebrovascular accident [Fatal]
  - Type 2 diabetes mellitus [Not Recovered/Not Resolved]
  - Death [Fatal]
  - Chronic obstructive pulmonary disease [Unknown]

NARRATIVE: CASE EVENT DATE: 20140805
